FAERS Safety Report 4275159-X (Version None)
Quarter: 2004Q1

REPORT INFORMATION
  Report Type: 
  Country: None (occurrence: None)
  Receive Date: 20040116
  Receipt Date: 20040109
  Transmission Date: 20041129
  Serious: Yes (Other)
  Sender: FDA-Public Use
  Company Number: 2004193817US

PATIENT
  Age: 16 Year
  Sex: Male
  Weight: 55.2 kg

DRUGS (3)
  1. GENOTROPIN [Suspect]
     Indication: HYPOPITUITARISM
     Dosage: 7.2 MG, WEEKLY,
     Dates: start: 19980616, end: 20030302
  2. CORTEF [Concomitant]
  3. SYNTHROID [Concomitant]

REACTIONS (3)
  - CHEST PAIN [None]
  - HEADACHE [None]
  - MEDICATION ERROR [None]
